FAERS Safety Report 5040210-6 (Version None)
Quarter: 2006Q2

REPORT INFORMATION
  Report Type: 
  Country: None (occurrence: None)
  Receive Date: 20060630
  Receipt Date: 20060620
  Transmission Date: 20061013
  Serious: Yes (Hospitalization)
  Sender: FDA-Public Use
  Company Number: DE-JNJFOC-20060604330

PATIENT
  Sex: Female
  Weight: 70 kg

DRUGS (5)
  1. TOPAMAX [Suspect]
     Dosage: 1 DOSE = 1 TABLET
     Route: 048
  2. TOPAMAX [Suspect]
     Indication: MIGRAINE PROPHYLAXIS
     Dosage: 1 DOSE = 1 TABLET
     Route: 048
  3. ASCO TOP [Concomitant]
     Route: 048
  4. ASCO TOP [Concomitant]
     Route: 048
  5. IBUPROFEN [Concomitant]
     Route: 048

REACTIONS (3)
  - CHEST PAIN [None]
  - HOSPITALISATION [None]
  - PALPITATIONS [None]
